FAERS Safety Report 9298787 (Version 2)
Quarter: 2013Q4

REPORT INFORMATION
  Report Type: Spontaneous
  Country: US (occurrence: US)
  Receive Date: 20130520
  Receipt Date: 20131114
  Transmission Date: 20140711
  Serious: Yes (Hospitalization)
  Sender: FDA-Public Use
  Company Number: US-BAYER-2013-062433

PATIENT
  Age: 21 Year
  Sex: Female
  Weight: 122.45 kg

DRUGS (11)
  1. YASMIN [Suspect]
     Indication: CONTRACEPTION
     Dosage: UNK
     Dates: start: 200602, end: 200710
  2. YAZ [Suspect]
     Indication: CONTRACEPTION
     Dosage: UNK
     Dates: start: 200602, end: 200710
  3. OCELLA [Suspect]
     Indication: CONTRACEPTION
     Dosage: UNK
     Dates: start: 200602, end: 200710
  4. VICODIN [Concomitant]
  5. ATENOLOL [Concomitant]
     Dosage: 25 MG, UNK
  6. METFORMIN [Concomitant]
     Dosage: 500 MG, UNK
  7. SINGULAIR [Concomitant]
     Dosage: 10 MG, UNK
  8. NAPROXEN [Concomitant]
  9. NAPROSYN [Concomitant]
     Dosage: 500 MG, UNK
  10. AUGMENTIN [Concomitant]
  11. PREDNISONE [Concomitant]

REACTIONS (9)
  - Deep vein thrombosis [Recovered/Resolved]
  - Pain [None]
  - Injury [Recovered/Resolved]
  - General physical health deterioration [Recovered/Resolved]
  - Anxiety [None]
  - Emotional distress [None]
  - Pain in extremity [Recovered/Resolved]
  - Thrombophlebitis [None]
  - Gait disturbance [Recovered/Resolved]
